FAERS Safety Report 6257588-8 (Version None)
Quarter: 2009Q3

REPORT INFORMATION
  Report Type: 
  Country: None (occurrence: None)
  Receive Date: 20090706
  Receipt Date: 20090625
  Transmission Date: 20100115
  Serious: Yes (Hospitalization)
  Sender: FDA-Public Use
  Company Number: AU-ASTRAZENECA-2009AP02064

PATIENT
  Sex: Female

DRUGS (2)
  1. ARIMIDEX [Suspect]
     Indication: BREAST CANCER
     Route: 048
  2. TAMOXIFEN CITRATE [Concomitant]
     Route: 048

REACTIONS (9)
  - HALLUCINATION [None]
  - HEART RATE IRREGULAR [None]
  - HYPERHIDROSIS [None]
  - OEDEMA PERIPHERAL [None]
  - PNEUMONIA VIRAL [None]
  - RENAL FAILURE [None]
  - SPEECH DISORDER [None]
  - URINARY BLADDER HAEMORRHAGE [None]
  - VIRAL INFECTION [None]
